FAERS Safety Report 15096812 (Version 1)
Quarter: 2018Q3

REPORT INFORMATION
  Report Type: Spontaneous
  Country: PT (occurrence: PT)
  Receive Date: 20180702
  Receipt Date: 20180702
  Transmission Date: 20181010
  Serious: Yes (Hospitalization, Other)
  Sender: FDA-Public Use
  Company Number: PT-009507513-1806PRT011842

PATIENT
  Sex: Male

DRUGS (2)
  1. KEYTRUDA [Suspect]
     Active Substance: PEMBROLIZUMAB
     Indication: COLORECTAL CANCER
  2. KEYTRUDA [Suspect]
     Active Substance: PEMBROLIZUMAB
     Indication: MICROSATELLITE INSTABILITY CANCER
     Dosage: CYCLICAL(ONLY ONE CYCLE)
     Dates: start: 20180608, end: 20180622

REACTIONS (8)
  - Performance status decreased [Unknown]
  - Myocardial infarction [Unknown]
  - Pneumonitis [Unknown]
  - Gastrointestinal stoma complication [Unknown]
  - Pyrexia [Unknown]
  - Neutropenia [Unknown]
  - Off label use [Unknown]
  - Cough [Unknown]

NARRATIVE: CASE EVENT DATE: 201806
